FAERS Safety Report 9983183 (Version 3)
Quarter: 2014Q2

REPORT INFORMATION
  Report Type: Spontaneous
  Country: US (occurrence: US)
  Receive Date: 20140307
  Receipt Date: 20140428
  Transmission Date: 20141212
  Serious: Yes (Other)
  Sender: FDA-Public Use
  Company Number: US-009507513-1403USA000982

PATIENT
  Age: 18 Year
  Sex: Female
  Weight: 70.3 kg

DRUGS (2)
  1. NEXPLANON [Suspect]
     Indication: CONTRACEPTION
     Dosage: ONE ROD ONCE
     Route: 059
     Dates: start: 20130521
  2. ESTROGENS (UNSPECIFIED) [Concomitant]
     Dosage: UNK

REACTIONS (7)
  - Hysterectomy [Recovering/Resolving]
  - Adhesion [Recovering/Resolving]
  - Uterine disorder [Recovering/Resolving]
  - Uterine pain [Recovering/Resolving]
  - Implant site pain [Recovered/Resolved]
  - Amenorrhoea [Not Recovered/Not Resolved]
  - Implant site bruising [Recovered/Resolved]
